FAERS Safety Report 16875535 (Version 1)
Quarter: 2019Q4

REPORT INFORMATION
  Report Type: Report from Study
  Country: JP (occurrence: JP)
  Receive Date: 20191002
  Receipt Date: 20191002
  Transmission Date: 20200122
  Serious: Yes (Death, Other)
  Sender: FDA-Public Use
  Company Number: JP-AMGEN-JPNSP2016153931

PATIENT
  Age: 7 Decade
  Sex: Female

DRUGS (6)
  1. ITRIZOLE [Concomitant]
     Active Substance: ITRACONAZOLE
     Dosage: 200 MG
     Route: 048
  2. PRAMIEL [Concomitant]
     Dosage: 15 MILLIGRAM
     Route: 065
  3. DARBEPOETIN ALFA [Suspect]
     Active Substance: DARBEPOETIN ALFA
     Indication: MYELODYSPLASTIC SYNDROME
     Dosage: 240 MICROGRAM
     Route: 065
     Dates: start: 20161024
  4. MENATETRENONE [Concomitant]
     Active Substance: MENATETRENONE
     Dosage: 45 MG
     Route: 048
  5. LEVOFLOXACIN. [Concomitant]
     Active Substance: LEVOFLOXACIN
     Dosage: 500 MILLIGRAM
     Route: 048
  6. LANSOPRAZOLE. [Concomitant]
     Active Substance: LANSOPRAZOLE
     Dosage: 15 MG
     Route: 065

REACTIONS (4)
  - Death [Fatal]
  - Pyrexia [Unknown]
  - Headache [Unknown]
  - Chills [Unknown]

NARRATIVE: CASE EVENT DATE: 20161024
